FAERS Safety Report 9661559 (Version 2)
Quarter: 2013Q4

REPORT INFORMATION
  Report Type: Spontaneous
  Country: US (occurrence: US)
  Receive Date: 20131031
  Receipt Date: 20131031
  Transmission Date: 20140711
  Serious: No
  Sender: FDA-Public Use
  Company Number: US-PURDUE-USA-2010-0054761

PATIENT
  Sex: Female

DRUGS (2)
  1. OXYCONTIN (NDA 22-272) [Suspect]
     Indication: PAIN
     Dosage: 40 MG
     Route: 048
     Dates: start: 20101019, end: 201010
  2. OXYCONTIN (NDA 22-272) [Suspect]
     Dosage: 60 MG, UNK
     Dates: start: 20101007

REACTIONS (3)
  - Pain [Unknown]
  - Drug ineffective [Unknown]
  - Drug effect decreased [Unknown]
